FAERS Safety Report 18173704 (Version 2)
Quarter: 2020Q3

REPORT INFORMATION
  Report Type: Spontaneous
  Country: IT (occurrence: IT)
  Receive Date: 20200820
  Receipt Date: 20200911
  Transmission Date: 20201103
  Serious: Yes (Disabling, Other)
  Sender: FDA-Public Use
  Company Number: IT-ASTRAZENECA-2020SF03432

PATIENT
  Age: 21 Year
  Sex: Female

DRUGS (3)
  1. DELTACORTENE [Concomitant]
     Active Substance: PREDNISONE
     Route: 065
  2. RELVAR [Concomitant]
     Active Substance: FLUTICASONE FUROATE\VILANTEROL TRIFENATATE
     Dosage: 92/22 1 INHALATION DAILY
     Route: 055
  3. BENRALIZUMAB. [Suspect]
     Active Substance: BENRALIZUMAB
     Route: 058
     Dates: start: 20200715

REACTIONS (4)
  - Haematoma [Recovered/Resolved]
  - Myalgia [Recovered/Resolved]
  - Motor dysfunction [Unknown]
  - Headache [Unknown]

NARRATIVE: CASE EVENT DATE: 20200715
